FAERS Safety Report 5391679-9 (Version None)
Quarter: 2007Q3

REPORT INFORMATION
  Report Type: 
  Country: None (occurrence: None)
  Receive Date: 20070717
  Receipt Date: 20070703
  Transmission Date: 20080115
  Serious: Yes (Hospitalization)
  Sender: FDA-Public Use
  Company Number: VNL_00637_2007

PATIENT
  Sex: Male

DRUGS (3)
  1. APO-GO (APOMORPHINE HYDROCHLORIDE) [Suspect]
     Indication: PARKINSON'S DISEASE
     Dosage: SUBCUTANEOUS
     Route: 058
  2. APO-GO (APOMORPHINE HYDROCHLORIDE) [Suspect]
     Indication: PARKINSON'S DISEASE
     Dosage: SUBCUTANEOUS
     Route: 058
  3. APO-GO (APOMORPHINE HYDROCHLORIDE) [Suspect]
     Indication: PARKINSON'S DISEASE
     Dosage: UP TO SIX T0 SEVEN TIMES DAILY

REACTIONS (3)
  - DEPENDENCE [None]
  - DRUG ABUSER [None]
  - TREMOR [None]
